FAERS Safety Report 6244912-5 (Version None)
Quarter: 2009Q2

REPORT INFORMATION
  Report Type: 
  Country: None (occurrence: None)
  Receive Date: 20090625
  Receipt Date: 20090612
  Transmission Date: 20091009
  Serious: Yes (Other)
  Sender: FDA-Public Use
  Company Number: PHHY2009BR23438

PATIENT
  Age: 58 Year
  Sex: Male
  Weight: 82 kg

DRUGS (1)
  1. EXFORGE [Suspect]
     Indication: HYPERTENSION
     Dosage: 1 TABLET (320/10MG) DAILY
     Route: 048

REACTIONS (4)
  - HERNIA HIATUS REPAIR [None]
  - HIATUS HERNIA [None]
  - INCORRECT DOSE ADMINISTERED [None]
  - MYOCARDIAL ISCHAEMIA [None]
